FAERS Safety Report 8985546 (Version 2)
Quarter: 2014Q2

REPORT INFORMATION
  Report Type: Spontaneous
  Country: SE (occurrence: SE)
  Receive Date: 20121226
  Receipt Date: 20131018
  Transmission Date: 20141212
  Serious: Yes (Hospitalization)
  Sender: FDA-Public Use
  Company Number: SE-PFIZER INC-2012320978

PATIENT
  Age: 21 Year
  Sex: Female

DRUGS (3)
  1. SALAZOPYRIN [Suspect]
     Indication: PSORIATIC ARTHROPATHY
     Dosage: 2 G, 1X/DAY
     Route: 048
     Dates: start: 20100218, end: 20110818
  2. METHOTREXATE SODIUM [Suspect]
     Indication: PSORIATIC ARTHROPATHY
     Dosage: 12 MG, WEEKLY
     Route: 048
     Dates: start: 20101221, end: 20110818
  3. SIMPONI [Suspect]
     Indication: PSORIATIC ARTHROPATHY
     Dosage: 50 MG, MONTHLY
     Route: 058
     Dates: start: 20101221, end: 20110818

REACTIONS (2)
  - Bacterial infection [Unknown]
  - Otitis media [Unknown]
